FAERS Safety Report 7070068-5 (Version None)
Quarter: 2010Q4

REPORT INFORMATION
  Report Type: 
  Country: None (occurrence: None)
  Receive Date: 20101028
  Receipt Date: 20100825
  Transmission Date: 20110411
  Serious: No
  Sender: FDA-Public Use
  Company Number: US-WYE-H17141710

PATIENT
  Age: 64 Year
  Sex: Female
  Weight: 90.8 kg

DRUGS (2)
  1. ADVIL [Suspect]
     Indication: MUSCLE STRAIN
     Dosage: 3 CAPLETS EVERY 6-8 HOURS
     Route: 048
     Dates: start: 20100701
  2. METOPROLOL [Concomitant]

REACTIONS (2)
  - DRUG EFFECT DECREASED [None]
  - NAUSEA [None]
